FAERS Safety Report 22300645 (Version 1)
Quarter: 2023Q2

REPORT INFORMATION
  Report Type: Report from Study
  Country: IN (occurrence: IN)
  Receive Date: 20230509
  Receipt Date: 20230509
  Transmission Date: 20230722
  Serious: Yes (Death)
  Sender: FDA-Public Use
  Company Number: IN-002147023-NVSC2021IN215902

PATIENT

DRUGS (7)
  1. RUXOLITINIB [Suspect]
     Active Substance: RUXOLITINIB
     Indication: Polycythaemia vera
     Dosage: 15 MG, QD
     Route: 065
     Dates: start: 20210809
  2. RUXOLITINIB [Suspect]
     Active Substance: RUXOLITINIB
     Indication: Drug intolerance
     Dosage: 15 MG, BID
     Route: 065
     Dates: start: 20210811, end: 20210819
  3. RUXOLITINIB [Suspect]
     Active Substance: RUXOLITINIB
     Dosage: 15 MG, QD
     Route: 065
     Dates: start: 20210828, end: 20210902
  4. RUXOLITINIB [Suspect]
     Active Substance: RUXOLITINIB
     Dosage: 15 MG, OTHER, ALTERNATE DATE
     Route: 065
     Dates: start: 20210903
  5. RUXOLITINIB [Suspect]
     Active Substance: RUXOLITINIB
     Dosage: 15 MG, QD ALTERNATE DAY
     Route: 065
     Dates: start: 202109, end: 20220222
  6. RUXOLITINIB [Suspect]
     Active Substance: RUXOLITINIB
     Dosage: 15 MG, OTHER (ALTERNATE DAY)
     Route: 065
     Dates: start: 20220601
  7. RUXOLITINIB [Suspect]
     Active Substance: RUXOLITINIB
     Dosage: 15 MG, OTHER (ALTERNATE DAY)
     Route: 065
     Dates: start: 20230214

REACTIONS (4)
  - Haemoglobin decreased [Unknown]
  - Death [Fatal]
  - Skin ulcer [Recovered/Resolved]
  - Inappropriate schedule of product administration [Unknown]

NARRATIVE: CASE EVENT DATE: 20210819
